FAERS Safety Report 18045843 (Version 1)
Quarter: 2020Q3

REPORT INFORMATION
  Report Type: Report from Study
  Country: US (occurrence: US)
  Receive Date: 20200720
  Receipt Date: 20200720
  Transmission Date: 20201103
  Serious: Yes (Death)
  Sender: FDA-Public Use
  Company Number: US-MYLANLABS-2020M1065554

PATIENT
  Age: 60 Year

DRUGS (14)
  1. CYTARABINE. [Suspect]
     Active Substance: CYTARABINE
     Indication: NEOPLASM MALIGNANT
     Dosage: 3 G/M2 INTRAVENOUSLY OVER 2 H EVERY 12 H...
     Route: 042
  2. METHOTREXATE. [Suspect]
     Active Substance: METHOTREXATE
     Dosage: 12 MG,ON DAY 2 DURING THE FIRST FOUR COURSES OF ...
     Route: 037
  3. FOLINIC ACID [Suspect]
     Active Substance: LEUCOVORIN
     Dosage: 15 MILLIGRAM, Q6H EIGHT DOSES
     Route: 042
  4. MESNA. [Concomitant]
     Active Substance: MESNA
     Indication: NEOPLASM MALIGNANT
     Dosage: 600 MILLIGRAM/SQ. METER, QD GIVEN AS A CONTINUOUS INTRAVENOUS INFUSION..
     Route: 042
  5. OFATUMUMAB [Suspect]
     Active Substance: OFATUMUMAB
     Dosage: 2000 MILLIGRAM ON DAY 11 OF COURSE THREE..
     Route: 042
  6. CYCLOPHOSPHAMIDE. [Suspect]
     Active Substance: CYCLOPHOSPHAMIDE
     Indication: NEOPLASM MALIGNANT
     Dosage: 300 MG/M2, BID, OVER 3 H EVERY 12 H FOR SIX DOSES ON ...
     Route: 042
  7. OFATUMUMAB [Suspect]
     Active Substance: OFATUMUMAB
     Indication: NEOPLASM MALIGNANT
     Dosage: 300 MILLIGRAM ON DAY 1 OF COURSE ONE
     Route: 042
  8. METHOTREXATE. [Suspect]
     Active Substance: METHOTREXATE
     Indication: PROPHYLAXIS
     Dosage: 800 MILLIGRAM/SQ. METER/22H, ON DAY 1 OF COURSES
     Route: 042
  9. CYTARABINE. [Suspect]
     Active Substance: CYTARABINE
     Indication: PROPHYLAXIS
     Dosage: 100 MG, ON DAY 7 DURING THE FIRST FOUR COURSES...
     Route: 037
  10. DEXAMETHASONE. [Suspect]
     Active Substance: DEXAMETHASONE
     Indication: NEOPLASM MALIGNANT
     Dosage: 40 MILLIGRAM, QD,ON DAYS 1?4 AND 11?14 ON COURSE..
     Route: 065
  11. VINCRISTINE [Suspect]
     Active Substance: VINCRISTINE
     Indication: NEOPLASM MALIGNANT
     Dosage: 2 MILLIGRAM, ON DAYS 4 AND 11 ON COURSES...
     Route: 042
  12. DOXORUBICIN [Suspect]
     Active Substance: DOXORUBICIN
     Indication: NEOPLASM MALIGNANT
     Dosage: 50 MILLIGRAM/SQ. METER, QD, OVER 24 H ON DAY 4 ON ..
     Route: 042
  13. METHOTREXATE. [Suspect]
     Active Substance: METHOTREXATE
     Indication: NEOPLASM MALIGNANT
     Dosage: 200 MILLIGRAM/SQ. METER, ON DAY 1 OF COURSES..
     Route: 042
  14. FOLINIC ACID [Suspect]
     Active Substance: LEUCOVORIN
     Indication: NEOPLASM MALIGNANT
     Dosage: 50 MILLIGRAM STARTING 12H AFTER THE END..
     Route: 042

REACTIONS (1)
  - Infection [Fatal]
